FAERS Safety Report 21903334 (Version 2)
Quarter: 2023Q1

REPORT INFORMATION
  Report Type: Spontaneous
  Country: US (occurrence: US)
  Receive Date: 20230124
  Receipt Date: 20230222
  Transmission Date: 20230418
  Serious: No
  Sender: FDA-Public Use
  Company Number: US-SA-SAC20230123001755

PATIENT
  Age: 18 Year
  Sex: Male

DRUGS (1)
  1. DUPIXENT [Suspect]
     Active Substance: DUPILUMAB
     Indication: Dermatitis atopic
     Dosage: 300 MG, QOW
     Route: 058
     Dates: start: 20220221

REACTIONS (5)
  - Dry skin [Unknown]
  - Inappropriate schedule of product administration [Unknown]
  - Madarosis [Unknown]
  - Eyelid skin dryness [Unknown]
  - Eyelids pruritus [Unknown]

NARRATIVE: CASE EVENT DATE: 20230201
